APPROVED DRUG PRODUCT: NEURACEQ
Active Ingredient: FLORBETABEN F-18
Strength: 1.4-135mCi/ML
Dosage Form/Route: SOLUTION;INTRAVENOUS
Application: N204677 | Product #001
Applicant: LIFE MOLECULAR IMAGING LTD
Approved: Mar 19, 2014 | RLD: Yes | RS: Yes | Type: RX

PATENTS:
Patent 7807135 | Expires: Mar 18, 2029
Patent 9308284 | Expires: Jul 14, 2032